FAERS Safety Report 19826463 (Version 1)
Quarter: 2021Q3

REPORT INFORMATION
  Report Type: Other
  Country: None (occurrence: DE)
  Receive Date: 20210913
  Receipt Date: 20210913
  Transmission Date: 20211014
  Serious: Yes (Other)
  Sender: FDA-Public Use
  Company Number: DE-B.BRAUN MEDICAL INC.-2118310

PATIENT
  Age: 39 Year
  Sex: Female

DRUGS (1)
  1. HEPARIN SODIUM IN DEXTROSE [Suspect]
     Active Substance: HEPARIN SODIUM
     Indication: CARDIAC FAILURE

REACTIONS (2)
  - Thrombosis [Recovered/Resolved]
  - Vaginal haemorrhage [Recovered/Resolved]
